FAERS Safety Report 12906250 (Version 9)
Quarter: 2021Q4

REPORT INFORMATION
  Report Type: Report from Study
  Country: JP (occurrence: JP)
  Receive Date: 20161103
  Receipt Date: 20211219
  Transmission Date: 20220303
  Serious: Yes (Congenital Anomaly, Other)
  Sender: FDA-Public Use
  Company Number: PHJP2016JP031264

PATIENT
  Age: 76 Year
  Sex: Male
  Weight: 65 kg

DRUGS (5)
  1. COSENTYX [Suspect]
     Active Substance: SECUKINUMAB
     Indication: Pustular psoriasis
     Dosage: 300 MG, UNK
     Route: 058
     Dates: start: 20161013
  2. COSENTYX [Suspect]
     Active Substance: SECUKINUMAB
     Dosage: 300 MG, UNK
     Route: 058
     Dates: start: 20161020, end: 20161020
  3. TIGASON [Concomitant]
     Indication: Pustular psoriasis
     Dosage: 10 TO 20 MG, BID
     Route: 048
     Dates: start: 201304, end: 20161020
  4. RINDERON [Concomitant]
     Indication: Pustular psoriasis
     Dosage: 2 MG, UNK
     Route: 065
     Dates: start: 201107
  5. RINDERON [Concomitant]
     Dosage: 1 MG, BID
     Route: 048
     Dates: start: 201304, end: 20161020

REACTIONS (8)
  - Pneumonia [Recovered/Resolved]
  - Physical deconditioning [Unknown]
  - Chest discomfort [Unknown]
  - Pyrexia [Unknown]
  - Muscular weakness [Unknown]
  - C-reactive protein increased [Unknown]
  - Nephrolithiasis [Unknown]
  - Renal cyst [Not Recovered/Not Resolved]

NARRATIVE: CASE EVENT DATE: 20161023
